FAERS Safety Report 7654534-7 (Version None)
Quarter: 2011Q3

REPORT INFORMATION
  Report Type: 
  Country: None (occurrence: None)
  Receive Date: 20110803
  Receipt Date: 20110728
  Transmission Date: 20111222
  Serious: Yes (Hospitalization)
  Sender: FDA-Public Use
  Company Number: JP-GENENTECH-322138

PATIENT
  Sex: Female

DRUGS (4)
  1. RITUXAN [Suspect]
     Indication: B-CELL LYMPHOMA
     Dosage: 500 MG, UNK
     Route: 042
     Dates: start: 20110525, end: 20110525
  2. AMLODIPINE [Concomitant]
     Indication: HYPERTENSION
     Dosage: 5 MG, UNK
     Dates: start: 20110512
  3. NEOMALLERMIN-TR [Concomitant]
     Indication: PREMEDICATION
     Dosage: 6 MG, UNK
     Dates: start: 20110525, end: 20110525
  4. ACETAMINOPHEN [Concomitant]
     Indication: PREMEDICATION
     Dosage: 200 MG, UNK
     Dates: start: 20110525, end: 20110525

REACTIONS (2)
  - STRESS CARDIOMYOPATHY [None]
  - ANGINA PECTORIS [None]
